FAERS Safety Report 7210138-1 (Version None)
Quarter: 2011Q1

REPORT INFORMATION
  Report Type: 
  Country: None (occurrence: None)
  Receive Date: 20110105
  Receipt Date: 20101223
  Transmission Date: 20110831
  Serious: Yes (Other)
  Sender: FDA-Public Use
  Company Number: CA-ELI_LILLY_AND_COMPANY-CA201012005932

PATIENT
  Age: 62 Year
  Sex: Male

DRUGS (12)
  1. CIALIS [Suspect]
  2. CRESTOR [Concomitant]
  3. CYMBALTA [Suspect]
     Dosage: 120 MG, UNK
     Dates: start: 20080601
  4. SYMBICORT [Concomitant]
  5. AVODART [Concomitant]
  6. ANDROGEL [Concomitant]
  7. NEXIUM [Concomitant]
  8. ALFUZOSIN [Concomitant]
  9. ZOPICLONE [Concomitant]
  10. DIAZEPAM [Concomitant]
  11. TRAZODONE [Concomitant]
  12. LITHIUM CARBONATE [Concomitant]

REACTIONS (1)
  - LUNG NEOPLASM MALIGNANT [None]
